FAERS Safety Report 15204005 (Version 2)
Quarter: 2019Q2

REPORT INFORMATION
  Report Type: Spontaneous
  Country: CA (occurrence: CA)
  Receive Date: 20180726
  Receipt Date: 20190524
  Transmission Date: 20190711
  Serious: Yes (Life-Threatening, Hospitalization)
  Sender: FDA-Public Use
  Company Number: CA-TEVA-2018-CA-933337

PATIENT
  Age: 82 Year
  Sex: Male
  Weight: 90.8 kg

DRUGS (7)
  1. MYLAN-NITRO PATCH 0.2 [Concomitant]
  2. AMIODARONE [Concomitant]
     Active Substance: AMIODARONE
  3. NITROGLYCERIN. [Concomitant]
     Active Substance: NITROGLYCERIN
     Dosage: FORM OF ADMIN: PATCH
  4. LASIX [Concomitant]
     Active Substance: FUROSEMIDE
  5. FINASTERIDE. [Suspect]
     Active Substance: FINASTERIDE
     Indication: PROSTATOMEGALY
     Dosage: 5 MILLIGRAM DAILY;
     Route: 048
  6. BISOPROLOL [Concomitant]
     Active Substance: BISOPROLOL
  7. MAVIK [Concomitant]
     Active Substance: TRANDOLAPRIL

REACTIONS (2)
  - Mastectomy [Recovering/Resolving]
  - Breast cancer male [Recovering/Resolving]
